FAERS Safety Report 9792877 (Version 1)
Quarter: 2014Q1

REPORT INFORMATION
  Report Type: Spontaneous
  Country: US (occurrence: US)
  Receive Date: 20140102
  Receipt Date: 20140102
  Transmission Date: 20141002
  Serious: No
  Sender: FDA-Public Use
  Company Number: US-SA-2013SA118130

PATIENT
  Age: 63 Year
  Sex: Female

DRUGS (10)
  1. AUBAGIO [Suspect]
     Indication: MULTIPLE SCLEROSIS
     Route: 048
     Dates: start: 20130111
  2. DONEPEZIL HYDROCHLORIDE [Concomitant]
  3. CITALOPRAM [Concomitant]
  4. BUPROPION HYDROCHLORIDE [Concomitant]
  5. GABAPENTIN [Concomitant]
  6. PRAMIPEXOLE [Concomitant]
  7. LATANOPROST [Concomitant]
     Dosage: STRENGTH; 0.005%
  8. RISPERDAL [Concomitant]
  9. VESICARE [Concomitant]
  10. ALPRAZOLAM [Concomitant]

REACTIONS (2)
  - Depression [Unknown]
  - Diarrhoea [Unknown]
